FAERS Safety Report 20763724 (Version 11)
Quarter: 2022Q4

REPORT INFORMATION
  Report Type: Spontaneous
  Country: US (occurrence: US)
  Receive Date: 20220428
  Receipt Date: 20221121
  Transmission Date: 20230112
  Serious: Yes (Hospitalization, Other)
  Sender: FDA-Public Use
  Company Number: US-GLAXOSMITHKLINE-US2022AMR070071

PATIENT

DRUGS (5)
  1. ZEJULA [Suspect]
     Active Substance: NIRAPARIB
     Indication: Ovarian cancer
     Dosage: 200 MG, QD
     Route: 048
  2. ZEJULA [Suspect]
     Active Substance: NIRAPARIB
     Dosage: 1 DF
     Route: 048
  3. ZEJULA [Suspect]
     Active Substance: NIRAPARIB
     Dosage: 200 MG, QD
     Route: 048
     Dates: end: 20220623
  4. ZEJULA [Suspect]
     Active Substance: NIRAPARIB
     Dosage: 100 MG, QD
     Dates: start: 20220822
  5. ZEJULA [Suspect]
     Active Substance: NIRAPARIB
     Dosage: 100 MG, QD

REACTIONS (29)
  - Pneumonia [Recovered/Resolved]
  - Asymptomatic COVID-19 [Recovered/Resolved]
  - Loss of consciousness [Unknown]
  - Neuropathy peripheral [Unknown]
  - Atrial fibrillation [Unknown]
  - Blood pressure increased [Recovered/Resolved]
  - Blood sodium decreased [Unknown]
  - Nodule [Unknown]
  - Fluid retention [Unknown]
  - Urinary tract infection [Unknown]
  - Dehydration [Unknown]
  - Full blood count abnormal [Unknown]
  - Red blood cell count abnormal [Not Recovered/Not Resolved]
  - Blood pressure decreased [Recovering/Resolving]
  - Swelling [Unknown]
  - Blood pressure fluctuation [Unknown]
  - Laboratory test abnormal [Unknown]
  - Red blood cell count decreased [Recovering/Resolving]
  - Cough [Not Recovered/Not Resolved]
  - Dry throat [Unknown]
  - Pleural effusion [Unknown]
  - Hypertension [Unknown]
  - Nasopharyngitis [Unknown]
  - Oropharyngeal pain [Unknown]
  - Dysphonia [Unknown]
  - Decreased activity [Unknown]
  - Bone marrow disorder [Unknown]
  - Fatigue [Recovering/Resolving]
  - Drug ineffective [Unknown]

NARRATIVE: CASE EVENT DATE: 20220617
